FAERS Safety Report 4725490-6 (Version None)
Quarter: 2005Q3

REPORT INFORMATION
  Report Type: 
  Country: None (occurrence: None)
  Receive Date: 20050727
  Receipt Date: 20050715
  Transmission Date: 20060218
  Serious: Yes (Hospitalization)
  Sender: FDA-Public Use
  Company Number: US-JNJFOC-20050703378

PATIENT
  Sex: Female

DRUGS (4)
  1. REMICADE [Suspect]
     Indication: RHEUMATOID ARTHRITIS
     Route: 042
  2. DAYPRO [Concomitant]
  3. METHOTREXATE [Concomitant]
  4. NEURONTIN [Concomitant]

REACTIONS (1)
  - DUODENAL ULCER HAEMORRHAGE [None]
